FAERS Safety Report 14584888 (Version 1)
Quarter: 2018Q1

REPORT INFORMATION
  Report Type: Report from Study
  Country: CA (occurrence: CA)
  Receive Date: 20180301
  Receipt Date: 20180301
  Transmission Date: 20180509
  Serious: Yes (Hospitalization)
  Sender: FDA-Public Use
  Company Number: CA-TAKEDA-2018TUS004851

PATIENT
  Age: 37 Year
  Sex: Male

DRUGS (3)
  1. MEZAVANT [Concomitant]
     Active Substance: MESALAMINE
     Dosage: UNK
  2. VEDOLIZUMAB [Suspect]
     Active Substance: VEDOLIZUMAB
     Indication: COLITIS ULCERATIVE
     Dosage: 300 MG, UNK
     Route: 042
     Dates: start: 20170524
  3. URSODIOL. [Concomitant]
     Active Substance: URSODIOL
     Indication: HYPERCHLORHYDRIA
     Dosage: 500 MG, BID

REACTIONS (2)
  - Bile duct stenosis [Unknown]
  - Infection [Unknown]
